FAERS Safety Report 18869036 (Version 3)
Quarter: 2021Q2

REPORT INFORMATION
  Report Type: Report from Study
  Country: US (occurrence: US)
  Receive Date: 20210209
  Receipt Date: 20210416
  Transmission Date: 20210717
  Serious: Yes (Hospitalization)
  Sender: FDA-Public Use
  Company Number: NVSC2021US023031

PATIENT
  Sex: Female

DRUGS (2)
  1. MEKINIST [Suspect]
     Active Substance: TRAMETINIB DIMETHYL SULFOXIDE
     Indication: PRODUCT USED FOR UNKNOWN INDICATION
     Dosage: UNK
     Route: 065
  2. PROMACTA [Suspect]
     Active Substance: ELTROMBOPAG OLAMINE
     Indication: PRODUCT USED FOR UNKNOWN INDICATION
     Dosage: UNK
     Route: 065

REACTIONS (12)
  - Skin haemorrhage [Unknown]
  - Pruritus [Unknown]
  - Platelet count decreased [Unknown]
  - Thermal burn [Unknown]
  - Drug intolerance [Unknown]
  - Fatigue [Unknown]
  - Asthenia [Unknown]
  - Eye swelling [Unknown]
  - Red blood cell count decreased [Unknown]
  - Fluid retention [Unknown]
  - Hypotension [Unknown]
  - Swelling face [Unknown]
